FAERS Safety Report 8386836-3 (Version None)
Quarter: 2012Q2

REPORT INFORMATION
  Report Type: 
  Country: None (occurrence: None)
  Receive Date: 20120525
  Receipt Date: 20120523
  Transmission Date: 20120825
  Serious: Yes (Hospitalization)
  Sender: FDA-Public Use
  Company Number: US-PFIZER INC-2012104183

PATIENT
  Sex: Female
  Weight: 79.819 kg

DRUGS (6)
  1. XANAX XR [Suspect]
     Indication: PANIC ATTACK
  2. LEXAPRO [Suspect]
     Dosage: UNK
     Dates: start: 20040101
  3. LEXAPRO [Suspect]
     Indication: DEPRESSION
     Dosage: 20 MG, UNK
     Dates: start: 20040101, end: 20040101
  4. XANAX XR [Suspect]
     Indication: ANXIETY
     Dosage: 1 MG, 3X/DAY
     Route: 048
     Dates: start: 20040101
  5. XANAX XR [Suspect]
     Indication: PANIC DISORDER
  6. XANAX XR [Suspect]
     Indication: DEPRESSION

REACTIONS (4)
  - MALAISE [None]
  - MENTAL DISORDER [None]
  - ANXIETY [None]
  - DEPRESSION [None]
